FAERS Safety Report 6859453-1 (Version None)
Quarter: 2010Q3

REPORT INFORMATION
  Report Type: 
  Country: None (occurrence: None)
  Receive Date: 20100719
  Receipt Date: 20080226
  Transmission Date: 20110219
  Serious: No
  Sender: FDA-Public Use
  Company Number: US-PFIZER INC-2008019766

PATIENT
  Sex: Female
  Weight: 76.4 kg

DRUGS (3)
  1. CHANTIX [Suspect]
     Indication: SMOKING CESSATION THERAPY
     Route: 048
     Dates: start: 20080214, end: 20080218
  2. ALENDRONATE SODIUM/COLECALCIFEROL [Concomitant]
  3. CALTRATE [Concomitant]

REACTIONS (3)
  - MALAISE [None]
  - MIGRAINE [None]
  - NAUSEA [None]
